FAERS Safety Report 8095054-8 (Version None)
Quarter: 2012Q1

REPORT INFORMATION
  Report Type: 
  Country: None (occurrence: None)
  Receive Date: 20120126
  Receipt Date: 20120118
  Transmission Date: 20120608
  Serious: Yes (Life-Threatening, Hospitalization, Other)
  Sender: FDA-Public Use
  Company Number: AUR-APL-2011-06335

PATIENT
  Age: 52 Year
  Sex: Male

DRUGS (9)
  1. CITALOPRAM HYDROBROMIDE [Concomitant]
  2. SIMVASTATIN [Concomitant]
  3. ASPIRIN [Concomitant]
  4. DILTIAZEM [Suspect]
     Indication: PRODUCT USED FOR UNKNOWN INDICATION
     Dosage: (3900 MG, ONCE)
  5. TAMSULOSIN HCL [Concomitant]
  6. RAMIPRIL [Suspect]
     Indication: PRODUCT USED FOR UNKNOWN INDICATION
     Dosage: (140 MG, ONCE)
  7. ISOSORBIDE MONONITRATE [Suspect]
     Indication: PRODUCT USED FOR UNKNOWN INDICATION
     Dosage: (800 MG, ONCE)
  8. OMEPRAZOLE [Concomitant]
  9. NICORANDIL (NICORANDIL) [Suspect]
     Indication: PRODUCT USED FOR UNKNOWN INDICATION
     Dosage: (120 MG, ONCE)

REACTIONS (8)
  - MULTIPLE DRUG OVERDOSE [None]
  - TOXICITY TO VARIOUS AGENTS [None]
  - NO THERAPEUTIC RESPONSE [None]
  - RENAL IMPAIRMENT [None]
  - HYPOTENSION [None]
  - VASCULAR RESISTANCE SYSTEMIC DECREASED [None]
  - SOMNOLENCE [None]
  - VASODILATATION [None]
